FAERS Safety Report 8573891-0 (Version None)
Quarter: 2012Q3

REPORT INFORMATION
  Report Type: 
  Country: None (occurrence: None)
  Receive Date: 20120806
  Receipt Date: 20120416
  Transmission Date: 20120928
  Serious: No
  Sender: FDA-Public Use
  Company Number: US-GLAXOSMITHKLINE-A0973849A

PATIENT
  Age: 68 Year
  Sex: Female

DRUGS (7)
  1. SIMVASTATIN [Concomitant]
  2. ASPIRIN [Concomitant]
  3. FLUTICASONE PROPIONATE [Suspect]
     Indication: INCREASED BRONCHIAL SECRETION
     Route: 055
     Dates: start: 20090101
  4. ONE A DAY [Concomitant]
  5. PRILOSEC [Concomitant]
  6. ASCORBIC ACID [Concomitant]
  7. CALCIUM WITH VITAMIN D [Concomitant]

REACTIONS (2)
  - PRODUCT QUALITY ISSUE [None]
  - DYSPNOEA [None]
